FAERS Safety Report 5793405-8 (Version None)
Quarter: 2008Q2

REPORT INFORMATION
  Report Type: 
  Country: None (occurrence: None)
  Receive Date: 20080601
  Receipt Date: 20080102
  Transmission Date: 20081010
  Serious: No
  Sender: FDA-Public Use
  Company Number: US200801000457

PATIENT
  Age: 68 Year
  Sex: Female
  Weight: 84.4 kg

DRUGS (4)
  1. BYETTA [Suspect]
     Indication: TYPE 2 DIABETES MELLITUS
     Dosage: 5 UG, 2/D, SUBCUTANEOUS
     Route: 058
     Dates: start: 20071207
  2. EXENATIDE 5MCG PEN, DISPOSABLE DEVICE (EXENATIDE PEN (5MCG)) PEN,DISPO [Concomitant]
  3. AVANDIA [Concomitant]
  4. GLIMEPIRIDE [Concomitant]

REACTIONS (3)
  - EUPHORIC MOOD [None]
  - FEELING ABNORMAL [None]
  - WEIGHT DECREASED [None]
